FAERS Safety Report 16949557 (Version 1)
Quarter: 2019Q4

REPORT INFORMATION
  Report Type: Spontaneous
  Country: IT (occurrence: IT)
  Receive Date: 20191023
  Receipt Date: 20191023
  Transmission Date: 20200122
  Serious: Yes (Life-Threatening, Hospitalization, Other)
  Sender: FDA-Public Use
  Company Number: IT-MACLEODS PHARMACEUTICALS US LTD-MAC2019023415

PATIENT

DRUGS (2)
  1. LEVOFLOXACIN 750 MG [Suspect]
     Active Substance: LEVOFLOXACIN
     Indication: PNEUMONIA
     Dosage: 750 MILLIGRAM, QD
     Route: 048
  2. LEVOFLOXACIN 750 MG [Suspect]
     Active Substance: LEVOFLOXACIN
     Indication: AORTITIS

REACTIONS (1)
  - Aortic rupture [Recovered/Resolved]
